FAERS Safety Report 6184872-9 (Version None)
Quarter: 2009Q2

REPORT INFORMATION
  Report Type: 
  Country: None (occurrence: None)
  Receive Date: 20090508
  Receipt Date: 20080619
  Transmission Date: 20091009
  Serious: Yes (Life-Threatening, Hospitalization)
  Sender: FDA-Public Use
  Company Number: IT-MERCK-0806ITA00009

PATIENT
  Age: 59 Year
  Sex: Female

DRUGS (4)
  1. ZOCOR [Suspect]
     Indication: MYOCARDIAL ISCHAEMIA
     Route: 048
     Dates: start: 20070704, end: 20080501
  2. ZOCOR [Suspect]
     Indication: DYSLIPIDAEMIA
     Route: 048
     Dates: start: 20070704, end: 20080501
  3. NITROGLYCERIN [Concomitant]
     Route: 061
  4. GLYBURIDE AND METFORMIN HYDROCHLORIDE [Suspect]
     Route: 048

REACTIONS (6)
  - DRUG INTERACTION [None]
  - GAIT DISTURBANCE [None]
  - HYPERKALAEMIA [None]
  - MYALGIA [None]
  - RENAL FAILURE ACUTE [None]
  - RHABDOMYOLYSIS [None]
